FAERS Safety Report 7462093-7 (Version None)
Quarter: 2011Q2

REPORT INFORMATION
  Report Type: 
  Country: None (occurrence: None)
  Receive Date: 20110506
  Receipt Date: 20110315
  Transmission Date: 20111010
  Serious: No
  Sender: FDA-Public Use
  Company Number: US-BAYER-2011-023029

PATIENT
  Age: 20 Year
  Sex: Female

DRUGS (1)
  1. NATAZIA [Suspect]

REACTIONS (2)
  - METRORRHAGIA [None]
  - ABDOMINAL PAIN [None]
